FAERS Safety Report 5758776-7 (Version None)
Quarter: 2008Q2

REPORT INFORMATION
  Report Type: 
  Country: None (occurrence: None)
  Receive Date: 20080602
  Receipt Date: 20080509
  Transmission Date: 20081010
  Serious: Yes (Life-Threatening, Hospitalization)
  Sender: FDA-Public Use
  Company Number: 2008013905

PATIENT
  Age: 69 Year
  Sex: Female

DRUGS (1)
  1. CETIRIZINE HYDROCHLORIDE (CETIRIZINE HYDROCHLORIDE (CETIRIZINE HYDROCH [Suspect]
     Indication: OFF LABEL USE
     Dosage: 1 DF, ORAL
     Route: 048
     Dates: start: 20080509, end: 20080509

REACTIONS (10)
  - ANAPHYLACTIC REACTION [None]
  - CHOKING [None]
  - DYSGEUSIA [None]
  - HYPOAESTHESIA [None]
  - LOSS OF CONSCIOUSNESS [None]
  - MOVEMENT DISORDER [None]
  - MUSCULOSKELETAL STIFFNESS [None]
  - PALPITATIONS [None]
  - THIRST [None]
  - TREMOR [None]
